FAERS Safety Report 23839246 (Version 4)
Quarter: 2024Q2

REPORT INFORMATION
  Report Type: Report from Study
  Country: CA (occurrence: CA)
  Receive Date: 20240509
  Receipt Date: 20240606
  Transmission Date: 20240716
  Serious: Yes (Hospitalization)
  Sender: FDA-Public Use
  Company Number: CA-ABBVIE-5630098

PATIENT
  Age: 86 Year
  Sex: Male
  Weight: 77 kg

DRUGS (6)
  1. VENCLEXTA [Suspect]
     Active Substance: VENETOCLAX
     Indication: Acute myeloid leukaemia
     Dosage: FORM STRENGTH: 70 MILLIGRAM ?2 TABLETS OF 10 MG AND 1 TABLET OF 50 MG DAILY (TOTAL DOSE: 70 MG DA...
     Route: 048
     Dates: start: 20240127
  2. VENCLEXTA [Suspect]
     Active Substance: VENETOCLAX
     Indication: Acute myeloid leukaemia
     Route: 048
  3. VENCLEXTA [Suspect]
     Active Substance: VENETOCLAX
     Indication: Acute myeloid leukaemia
     Route: 048
  4. COVID-19 vaccine [Concomitant]
     Indication: COVID-19 immunisation
     Dosage: TIME INTERVAL: TOTAL
     Route: 030
  5. AZACITIDINE [Concomitant]
     Active Substance: AZACITIDINE
     Indication: Product used for unknown indication
     Dosage: FREQUENCY TEXT: 7 TIMES EVERY 28 DAYS
     Route: 042
     Dates: start: 20240327, end: 20240402
  6. VIDAZA [Concomitant]
     Active Substance: AZACITIDINE
     Indication: Product used for unknown indication

REACTIONS (5)
  - Transient ischaemic attack [Recovered/Resolved]
  - Off label use [Unknown]
  - Cerebral disorder [Unknown]
  - Neutrophil count decreased [Recovering/Resolving]
  - Aphasia [Unknown]

NARRATIVE: CASE EVENT DATE: 20240101
